FAERS Safety Report 5156727-X (Version None)
Quarter: 2006Q4

REPORT INFORMATION
  Report Type: 
  Country: None (occurrence: None)
  Receive Date: 20061115
  Receipt Date: 20061031
  Transmission Date: 20070319
  Serious: Yes (Hospitalization, Other)
  Sender: FDA-Public Use
  Company Number: 2006-277

PATIENT
  Age: 78 Year
  Sex: Male

DRUGS (10)
  1. CIPROFLOXACIN [Suspect]
     Indication: INFECTION
     Dosage: 500MG TWICE A DAY
     Dates: start: 20061002, end: 20061002
  2. ASPIRIN [Concomitant]
  3. CALCIUM CARBONATE [Concomitant]
  4. CARBOCISTEINE [Concomitant]
  5. FUROSEMIDE [Concomitant]
  6. MONOMAX SR [Concomitant]
  7. OMEPRAZOLE [Concomitant]
  8. SERETIDE [Concomitant]
  9. TIOTROPIUM [Concomitant]
  10. THEOPHYLLINE [Concomitant]

REACTIONS (3)
  - HEMIPARESIS [None]
  - MYALGIA [None]
  - SIMILAR REACTION ON PREVIOUS EXPOSURE TO DRUG [None]
